FAERS Safety Report 19661390 (Version 1)
Quarter: 2021Q3

REPORT INFORMATION
  Report Type: Spontaneous
  Country: US (occurrence: US)
  Receive Date: 20210805
  Receipt Date: 20210805
  Transmission Date: 20211014
  Serious: Yes (Other)
  Sender: FDA-Public Use
  Company Number: US-PFIZER INC-202100941960

PATIENT
  Age: 77 Year
  Sex: Female
  Weight: 73.94 kg

DRUGS (2)
  1. IBRANCE [Suspect]
     Active Substance: PALBOCICLIB
     Indication: BREAST CANCER METASTATIC
     Dosage: 125 MG, CYCLIC (TAKES FOR 21 DAYS AND THEN OFF FOR 7 DAYS. SHE TAKES IT AT NOON)
     Dates: start: 201711
  2. FASLODEX [Concomitant]
     Active Substance: FULVESTRANT
     Route: 030

REACTIONS (4)
  - Immune system disorder [Unknown]
  - White blood cell count decreased [Recovering/Resolving]
  - Tumour marker increased [Unknown]
  - Neutrophil count decreased [Recovering/Resolving]

NARRATIVE: CASE EVENT DATE: 20210712
